FAERS Safety Report 20852959 (Version 2)
Quarter: 2022Q2

REPORT INFORMATION
  Report Type: Spontaneous
  Country: KZ (occurrence: KZ)
  Receive Date: 20220520
  Receipt Date: 20220607
  Transmission Date: 20220721
  Serious: Yes (Other)
  Sender: FDA-Public Use
  Company Number: KZ-NOVARTISPH-NVSC2022KZ094540

PATIENT
  Sex: Female

DRUGS (2)
  1. BROLUCIZUMAB [Suspect]
     Active Substance: BROLUCIZUMAB
     Indication: Neovascular age-related macular degeneration
     Dosage: 0.05 (UNITS NOT SPECIFIED)
     Route: 031
     Dates: start: 20220223, end: 20220223
  2. BROLUCIZUMAB [Suspect]
     Active Substance: BROLUCIZUMAB
     Dosage: 0.05 (UNITS NOT SPECIFIED)
     Route: 031
     Dates: start: 20220419, end: 20220419

REACTIONS (5)
  - Cyclitis [Recovered/Resolved]
  - Visual impairment [Recovered/Resolved]
  - Ocular hyperaemia [Recovered/Resolved]
  - Keratic precipitates [Unknown]
  - Eye pain [Unknown]

NARRATIVE: CASE EVENT DATE: 20220419
